FAERS Safety Report 10190813 (Version 2)
Quarter: 2014Q2

REPORT INFORMATION
  Report Type: Report from Study
  Country: CA (occurrence: CA)
  Receive Date: 20140523
  Receipt Date: 20140523
  Transmission Date: 20141212
  Serious: Yes (Death)
  Sender: FDA-Public Use
  Company Number: PHHY2014CA017285

PATIENT
  Age: 78 Year
  Sex: Female

DRUGS (2)
  1. SANDOSTATIN (OCTREOTIDE ACETATE) [Suspect]
     Indication: NEUROENDOCRINE CARCINOMA METASTATIC
     Dosage: UNK UKN, TID
     Route: 058
     Dates: start: 20140102
  2. SANDOSTATIN LAR [Suspect]
     Indication: NEUROENDOCRINE CARCINOMA METASTATIC
     Dosage: 40 MG, EVERY 4 WEEKS
     Route: 030
     Dates: start: 20140218, end: 20140320

REACTIONS (1)
  - Death [Fatal]
